FAERS Safety Report 19311021 (Version 3)
Quarter: 2021Q2

REPORT INFORMATION
  Report Type: Report from Study
  Country: US (occurrence: US)
  Receive Date: 20210526
  Receipt Date: 20210624
  Transmission Date: 20210717
  Serious: Yes (Other)
  Sender: FDA-Public Use
  Company Number: US-AMGEN-USASL2021045693

PATIENT
  Age: 72 Year
  Sex: Female
  Weight: 78.46 kg

DRUGS (14)
  1. PROLIA [Suspect]
     Active Substance: DENOSUMAB
     Dosage: 60 MILLIGRAM PER MILLILITRE, Q6MO
     Route: 058
  2. COVID?19 VACCINE [Concomitant]
     Dosage: UNK
     Dates: start: 20210309
  3. GABAPENTIN. [Concomitant]
     Active Substance: GABAPENTIN
     Dosage: 300 MILLIGRAM, QD
     Route: 048
  4. CALCIUM [Concomitant]
     Active Substance: CALCIUM
     Dosage: UNK
  5. AZATHIOPRINE. [Concomitant]
     Active Substance: AZATHIOPRINE
     Indication: AUTOIMMUNE HEPATITIS
     Dosage: 75 MILLIGRAM, DAILY
     Route: 048
  6. ESCITALOPRAM OXALATE. [Concomitant]
     Active Substance: ESCITALOPRAM OXALATE
     Dosage: 10 MILLIGRAM, ONCE A DAY
     Route: 048
  7. PREDNISONE. [Concomitant]
     Active Substance: PREDNISONE
     Indication: AUTOIMMUNE DISORDER
     Dosage: 5 MILLIGRAM, QD
  8. VITAMIN D [ERGOCALCIFEROL] [Concomitant]
     Active Substance: ERGOCALCIFEROL
     Dosage: 50 MICROGRAM, (2000UT)ONCE A DAY
  9. CALCIUM AND VITAMIN D [Concomitant]
     Active Substance: CALCIUM\VITAMIN D
     Dosage: 600?200 MILLIGRAM?UNIT, TWICE A DAY
     Route: 048
  10. FLEXERIL [Concomitant]
     Active Substance: CYCLOBENZAPRINE HYDROCHLORIDE
     Dosage: 10 MILLIGRAM, AS NEEDED AT NIGHT DAILY
     Route: 048
  11. MYRBETRIC [Concomitant]
     Active Substance: MIRABEGRON
     Dosage: 50 MILLIGRAM, ONCE A DAY
  12. PROLIA [Suspect]
     Active Substance: DENOSUMAB
     Indication: OSTEOPOROSIS
     Dosage: 60 MILLIGRAM
     Route: 065
     Dates: start: 20210125
  13. COVID?19 VACCINE [Concomitant]
     Dosage: UNK
  14. LISINOPRIL. [Concomitant]
     Active Substance: LISINOPRIL
     Dosage: 20 MILLIGRAM, QD
     Route: 048

REACTIONS (13)
  - Fatigue [Unknown]
  - Blood pressure abnormal [Unknown]
  - Tooth infection [Recovered/Resolved]
  - Tooth loss [Unknown]
  - Musculoskeletal stiffness [Not Recovered/Not Resolved]
  - Sciatica [Unknown]
  - Spinal stenosis [Unknown]
  - Arthritis [Not Recovered/Not Resolved]
  - Tooth extraction [Unknown]
  - Erythema [Recovered/Resolved]
  - Rosacea [Not Recovered/Not Resolved]
  - Constipation [Unknown]
  - Pain in extremity [Not Recovered/Not Resolved]

NARRATIVE: CASE EVENT DATE: 2021
